FAERS Safety Report 4420817-7 (Version None)
Quarter: 2004Q3

REPORT INFORMATION
  Report Type: 
  Country: None (occurrence: None)
  Receive Date: 20040809
  Receipt Date: 20040608
  Transmission Date: 20050211
  Serious: No
  Sender: FDA-Public Use
  Company Number: US-GLAXOSMITHKLINE-A0513785A

PATIENT

DRUGS (2)
  1. PAXIL [Suspect]
     Indication: ANXIETY
     Dosage: 20MG TWICE PER DAY
     Route: 048
  2. CLONAZEPAM [Concomitant]

REACTIONS (2)
  - DIZZINESS [None]
  - WEIGHT INCREASED [None]
